FAERS Safety Report 7734659-8 (Version None)
Quarter: 2011Q3

REPORT INFORMATION
  Report Type: 
  Country: None (occurrence: None)
  Receive Date: 20110817
  Receipt Date: 20110604
  Transmission Date: 20111222
  Serious: Yes (Other)
  Sender: FDA-Public Use
  Company Number: 201110241

PATIENT
  Sex: Male

DRUGS (1)
  1. LIORESAL [Suspect]
     Indication: MUSCLE SPASTICITY
     Dosage: DAILY, INTRATHECAL - SEE B5
     Route: 037

REACTIONS (7)
  - INFLUENZA LIKE ILLNESS [None]
  - CONVULSION [None]
  - THERAPEUTIC RESPONSE DECREASED [None]
  - DIZZINESS [None]
  - HYPERTONIA [None]
  - INSOMNIA [None]
  - MUSCULOSKELETAL STIFFNESS [None]
